FAERS Safety Report 9548557 (Version 1)
Quarter: 2013Q3

REPORT INFORMATION
  Report Type: Spontaneous
  Country: US (occurrence: None)
  Receive Date: 20130923
  Receipt Date: 20130923
  Transmission Date: 20140515
  Serious: No
  Sender: FDA-Public Use
  Company Number: None

PATIENT
  Age: 52 Year
  Sex: Female
  Weight: 90.72 kg

DRUGS (1)
  1. BETAMETHASONE VALERATE [Suspect]
     Indication: PSORIASIS
     Dosage: TWICE DAILY APPLIED TO A SURFACE USUALLY THE SKIN.
     Dates: start: 20130724, end: 20130918

REACTIONS (3)
  - Drug effect decreased [None]
  - Product substitution issue [None]
  - Product quality issue [None]
